FAERS Safety Report 6556086-1 (Version None)
Quarter: 2010Q1

REPORT INFORMATION
  Report Type: 
  Country: None (occurrence: None)
  Receive Date: 20100128
  Receipt Date: 20090327
  Transmission Date: 20100710
  Serious: Yes (Hospitalization)
  Sender: FDA-Public Use
  Company Number: US-TEVA-189682USA

PATIENT
  Sex: Female

DRUGS (4)
  1. COPAXONE [Suspect]
     Indication: MULTIPLE SCLEROSIS
     Route: 058
     Dates: start: 20050201, end: 20090201
  2. FOSAMAX [Concomitant]
     Indication: OSTEOPOROSIS
  3. TRAZODONE [Concomitant]
     Indication: INSOMNIA
  4. VITAMIN B COMPLEX CAP [Concomitant]
     Indication: MEDICAL DIET

REACTIONS (1)
  - PNEUMONIA [None]
